FAERS Safety Report 10425361 (Version 4)
Quarter: 2014Q4

REPORT INFORMATION
  Report Type: Report from Study
  Country: US (occurrence: US)
  Receive Date: 20140902
  Receipt Date: 20141126
  Transmission Date: 20150528
  Serious: Yes (Hospitalization, Other)
  Sender: FDA-Public Use
  Company Number: US-ABBVIE-14K-163-1277354-00

PATIENT
  Age: 21 Year
  Sex: Female
  Weight: 44.04 kg

DRUGS (5)
  1. HUMIRA [Suspect]
     Active Substance: ADALIMUMAB
     Dosage: TWO WEEKS AFTER 160 MG DOSE
     Route: 065
     Dates: start: 201407, end: 201407
  2. HUMIRA [Suspect]
     Active Substance: ADALIMUMAB
     Route: 065
     Dates: start: 20141030
  3. IRON [Concomitant]
     Active Substance: IRON
     Indication: PRODUCT USED FOR UNKNOWN INDICATION
     Dosage: WHEN SHE REMEMBER TO TAKE IT
  4. HUMIRA [Suspect]
     Active Substance: ADALIMUMAB
     Indication: CROHN^S DISEASE
     Route: 065
     Dates: start: 20140705, end: 20140705
  5. HUMIRA [Suspect]
     Active Substance: ADALIMUMAB
     Dosage: STARTED 4 WEEKS AFTER 160MG LOADING DOSE
     Route: 065
     Dates: start: 2014, end: 201408

REACTIONS (6)
  - Intestinal stenosis [Recovering/Resolving]
  - Intestinal adhesion lysis [Unknown]
  - Small intestinal obstruction [Unknown]
  - Volvulus [Recovered/Resolved]
  - Abdominal adhesions [Recovered/Resolved]
  - Gastrointestinal inflammation [Recovered/Resolved]

NARRATIVE: CASE EVENT DATE: 2014
